FAERS Safety Report 8979337 (Version 1)
Quarter: 2012Q4

REPORT INFORMATION
  Report Type: 
  Country: US (occurrence: US)
  Receive Date: 20121221
  Receipt Date: 20121221
  Transmission Date: 20130627
  Serious: Yes (Other)
  Sender: FDA-Public Use
  Company Number: US-MYLANLABS-2012S1025610

PATIENT
  Age: 66 Year
  Sex: Female

DRUGS (15)
  1. DILTIAZEM [Suspect]
     Indication: HYPERTENSION
     Route: 065
     Dates: start: 201107
  2. FUROSEMIDE [Suspect]
     Indication: OEDEMA PERIPHERAL
     Route: 065
  3. HYDROCHLOROTHIAZIDE [Suspect]
     Route: 065
  4. ATENOLOL [Concomitant]
     Route: 065
  5. BUPROPION [Concomitant]
     Route: 065
  6. NISOLDIPINE [Concomitant]
     Route: 065
  7. GABAPENTIN [Concomitant]
     Route: 065
  8. SINEMET [Concomitant]
     Route: 065
  9. TRAZODONE [Concomitant]
     Route: 065
  10. CITALOPRAM [Concomitant]
     Route: 065
  11. DULOXETINE [Concomitant]
     Route: 065
  12. ZIPRASIDONE [Concomitant]
     Route: 065
  13. OXYCODONE/APAP                     /01601701/ [Concomitant]
     Route: 065
  14. OMEGA-3 [Concomitant]
     Route: 065
  15. CALCIUM [Concomitant]
     Route: 065

REACTIONS (2)
  - Cutaneous lupus erythematosus [Recovered/Resolved]
  - Condition aggravated [Recovered/Resolved]
